FAERS Safety Report 8198672-1 (Version None)
Quarter: 2012Q1

REPORT INFORMATION
  Report Type: 
  Country: None (occurrence: None)
  Receive Date: 20120309
  Receipt Date: 20120124
  Transmission Date: 20120608
  Serious: No
  Sender: FDA-Public Use
  Company Number: US-AMGEN-USASP2012004797

PATIENT
  Age: 72 Year
  Sex: Female

DRUGS (10)
  1. VESICARE [Concomitant]
     Dosage: UNK UNK, QD
  2. VITAMIN D [Concomitant]
     Dosage: UNK UNK, QD
  3. MOBIC [Concomitant]
     Dosage: UNK UNK, QD
  4. CITALOPRAM HYDROBROMIDE [Concomitant]
     Dosage: UNK UNK, QD
  5. RESTASIS [Concomitant]
  6. PROLIA [Suspect]
     Indication: OSTEOPOROSIS POSTMENOPAUSAL
     Dosage: UNK UNK, Q6MO
     Route: 058
     Dates: start: 20110101
  7. CALCIUM [Concomitant]
  8. PNEUMOVAX 23 [Concomitant]
     Dates: start: 20120104
  9. GABAPENTIN [Concomitant]
     Dosage: UNK UNK, QD
  10. MECOBALAMIN [Concomitant]
     Dosage: UNK

REACTIONS (1)
  - ALLERGY TO VACCINE [None]
